FAERS Safety Report 14037913 (Version 2)
Quarter: 2018Q4

REPORT INFORMATION
  Report Type: Spontaneous
  Country: FR (occurrence: FR)
  Receive Date: 20171004
  Receipt Date: 20181008
  Transmission Date: 20190204
  Serious: Yes (Hospitalization)
  Sender: FDA-Public Use
  Company Number: FR-ACCORD-059516

PATIENT
  Age: 73 Year
  Sex: Male

DRUGS (3)
  1. LEVOTHYROX [Concomitant]
     Active Substance: LEVOTHYROXINE
     Dosage: 150 UG IN THE MORNING
  2. SIMVASTATIN. [Concomitant]
     Active Substance: SIMVASTATIN
     Dosage: 20 MG IN THE MORNING
  3. GEMCITABINE ACCORD [Suspect]
     Active Substance: GEMCITABINE HYDROCHLORIDE
     Indication: ADENOCARCINOMA GASTRIC
     Dosage: STRENGTH: 2000 MG
     Route: 042
     Dates: start: 201701, end: 20170718

REACTIONS (4)
  - Thrombotic microangiopathy [Recovered/Resolved]
  - Hypertension [Unknown]
  - Off label use [Unknown]
  - Renal injury [Unknown]

NARRATIVE: CASE EVENT DATE: 20170724
